FAERS Safety Report 10200948 (Version 1)
Quarter: 2014Q2

REPORT INFORMATION
  Report Type: Spontaneous
  Country: IT (occurrence: IT)
  Receive Date: 20140528
  Receipt Date: 20140528
  Transmission Date: 20141212
  Serious: Yes (Other)
  Sender: FDA-Public Use
  Company Number: IT-VERTEX PHARMACEUTICALS INC-2014-002479

PATIENT
  Age: 51 Year
  Sex: Female

DRUGS (6)
  1. INCIVO [Suspect]
     Indication: CHRONIC HEPATITIS C
     Dosage: 1125 MG, QD
     Route: 048
     Dates: start: 20140425, end: 20140520
  2. PEGASYS [Suspect]
     Indication: CHRONIC HEPATITIS C
     Dosage: 180 ?G, QW
     Route: 058
     Dates: start: 20140425, end: 20140520
  3. COPEGUS [Suspect]
     Indication: CHRONIC HEPATITIS C
     Dosage: 600 MG, QD
     Route: 048
     Dates: start: 20140425, end: 20140520
  4. OXYCODONE HCL [Concomitant]
     Indication: BACK PAIN
     Dosage: UNK
     Route: 065
  5. TACHIPIRINA [Concomitant]
     Indication: BACK PAIN
     Dosage: 1000 MG, QD
     Route: 065
  6. FENTANYL [Concomitant]
     Indication: BACK PAIN
     Route: 062

REACTIONS (2)
  - Rash [Recovered/Resolved]
  - Pruritus [Recovered/Resolved]
